FAERS Safety Report 18825205 (Version 2)
Quarter: 2021Q1

REPORT INFORMATION
  Report Type: Spontaneous
  Country: US (occurrence: US)
  Receive Date: 20210202
  Receipt Date: 20210318
  Transmission Date: 20210419
  Serious: Yes (Hospitalization)
  Sender: FDA-Public Use
  Company Number: US-ELI_LILLY_AND_COMPANY-US202101013101

PATIENT
  Age: 46 Year
  Sex: Male
  Weight: 104 kg

DRUGS (3)
  1. HYZAAR [Concomitant]
     Active Substance: HYDROCHLOROTHIAZIDE\LOSARTAN POTASSIUM
     Indication: ESSENTIAL HYPERTENSION
     Dosage: UNK, DAILY
     Route: 048
     Dates: start: 20200406
  2. ALBUTEROL HFA [Concomitant]
     Active Substance: ALBUTEROL SULFATE
     Indication: PRODUCT USED FOR UNKNOWN INDICATION
     Dosage: 2 DOSAGE FORM, EVERY 4 HRS
     Route: 055
     Dates: start: 20170501
  3. BAMLANIVIMAB 700MG [Suspect]
     Active Substance: BAMLANIVIMAB
     Indication: COVID-19
     Dosage: 700 MG, SINGLE
     Route: 042
     Dates: start: 20210125, end: 20210125

REACTIONS (6)
  - Pneumonia bacterial [Unknown]
  - Diarrhoea [Unknown]
  - Faeces discoloured [Unknown]
  - COVID-19 pneumonia [Unknown]
  - Respiratory failure [Unknown]
  - Polycythaemia [Unknown]

NARRATIVE: CASE EVENT DATE: 20210126
